FAERS Safety Report 12391519 (Version 1)
Quarter: 2016Q2

REPORT INFORMATION
  Report Type: Spontaneous
  Country: FI (occurrence: FI)
  Receive Date: 20160521
  Receipt Date: 20160521
  Transmission Date: 20160815
  Serious: Yes (Life-Threatening, Other)
  Sender: FDA-Public Use
  Company Number: FI-ACCORD-040177

PATIENT
  Age: 71 Year
  Sex: Female
  Weight: 49 kg

DRUGS (6)
  1. ATOSIL [Concomitant]
     Active Substance: PROMETHAZINE HYDROCHLORIDE
     Dosage: STRENGTH: 50 MG
     Route: 030
  2. RANITIDINE. [Concomitant]
     Active Substance: RANITIDINE
     Dosage: STRENGTH: 50 MG
     Route: 042
  3. GRANISETRON [Concomitant]
     Active Substance: GRANISETRON
     Dosage: STRENGTH: 1 MG
     Route: 042
  4. ZOPINOX [Concomitant]
     Active Substance: ZOPICLONE
     Indication: INSOMNIA
     Dosage: WHEN NECESSARY
     Route: 048
     Dates: start: 20110618
  5. PACLITAXEL ACCORD [Suspect]
     Active Substance: PACLITAXEL
     Indication: LUNG ADENOCARCINOMA
     Dosage: STRENGTH: 6 MG/ML (50 ML)?1ST CYCLE 03 WEEKS
     Dates: start: 20160408, end: 20160408
  6. ORADEXON [Concomitant]
     Active Substance: DEXAMETHASONE
     Dosage: STRENGTH : 20 MG
     Route: 042

REACTIONS (5)
  - Seizure [Recovered/Resolved]
  - Dyspnoea [Recovered/Resolved]
  - Loss of consciousness [Recovered/Resolved]
  - Dysgeusia [Recovered/Resolved]
  - Fatigue [Recovered/Resolved]

NARRATIVE: CASE EVENT DATE: 20160408
